FAERS Safety Report 7679469-5 (Version None)
Quarter: 2011Q3

REPORT INFORMATION
  Report Type: 
  Country: None (occurrence: None)
  Receive Date: 20110812
  Receipt Date: 20110812
  Transmission Date: 20111222
  Serious: Yes (Other)
  Sender: FDA-Public Use
  Company Number: None

PATIENT
  Age: 77 Year
  Sex: Male
  Weight: 87.089 kg

DRUGS (1)
  1. LYRICA [Suspect]
     Indication: KNEE ARTHROPLASTY
     Dosage: 300MG
     Route: 048
     Dates: start: 20110808, end: 20110808

REACTIONS (1)
  - DYSKINESIA [None]
